FAERS Safety Report 10144144 (Version 2)
Quarter: 2014Q2

REPORT INFORMATION
  Report Type: Report from Study
  Country: DE (occurrence: DE)
  Receive Date: 20140430
  Receipt Date: 20140512
  Transmission Date: 20141212
  Serious: Yes (Hospitalization)
  Sender: FDA-Public Use
  Company Number: DE-BAYER-2014-059261

PATIENT
  Age: 56 Year
  Sex: Female
  Weight: 59 kg

DRUGS (2)
  1. SORAFENIB (RAF KINASE INHIBITOR) [Suspect]
     Indication: INTRAOCULAR MELANOMA
     Dosage: 400 MG DAILY
     Dates: start: 20140319, end: 20140401
  2. SORAFENIB (RAF KINASE INHIBITOR) [Suspect]
     Indication: INTRAOCULAR MELANOMA
     Dosage: 400 MG DAILY
     Dates: start: 20140405, end: 20140414

REACTIONS (2)
  - General physical health deterioration [Recovering/Resolving]
  - Pyrexia [Recovering/Resolving]
